FAERS Safety Report 18870129 (Version 2)
Quarter: 2021Q2

REPORT INFORMATION
  Report Type: Spontaneous
  Country: US (occurrence: US)
  Receive Date: 20210209
  Receipt Date: 20210614
  Transmission Date: 20210717
  Serious: Yes (Other)
  Sender: FDA-Public Use
  Company Number: US-GILEAD-2021-0515544

PATIENT
  Sex: Male
  Weight: 67.6 kg

DRUGS (65)
  1. COMPLERA [Suspect]
     Active Substance: EMTRICITABINE\RILPIVIRINE HYDROCHLORIDE\TENOFOVIR DISOPROXIL FUMARATE
     Indication: HIV INFECTION
     Dosage: UNK
     Route: 048
     Dates: start: 20141230, end: 201511
  2. LANTHANUM CARBONATE. [Concomitant]
     Active Substance: LANTHANUM CARBONATE
  3. CALCITRIOL. [Concomitant]
     Active Substance: CALCITRIOL
  4. CALCIUM [Concomitant]
     Active Substance: CALCIUM
  5. CIPROFLOXACIN. [Concomitant]
     Active Substance: CIPROFLOXACIN
  6. DIPHENHYDRAMINE. [Concomitant]
     Active Substance: DIPHENHYDRAMINE
  7. FLUCONAZOLE. [Concomitant]
     Active Substance: FLUCONAZOLE
  8. IBUPROFEN. [Concomitant]
     Active Substance: IBUPROFEN
  9. LOPERAMIDE [Concomitant]
     Active Substance: LOPERAMIDE
  10. MESALAMINE. [Concomitant]
     Active Substance: MESALAMINE
  11. METHOCARBAMOL. [Concomitant]
     Active Substance: METHOCARBAMOL
  12. MUPIROCIN. [Concomitant]
     Active Substance: MUPIROCIN
  13. NOVOLOG [Concomitant]
     Active Substance: INSULIN ASPART
  14. OXYCODONE [Concomitant]
     Active Substance: OXYCODONE
  15. SUCRALFATE. [Concomitant]
     Active Substance: SUCRALFATE
  16. PREZCOBIX [Concomitant]
     Active Substance: COBICISTAT\DARUNAVIR ETHANOLATE
  17. CARVEDILOL. [Concomitant]
     Active Substance: CARVEDILOL
  18. CEPHALEXIN HCL [Concomitant]
     Active Substance: CEPHALEXIN HYDROCHLORIDE
  19. ONDANSETRON [Concomitant]
     Active Substance: ONDANSETRON
  20. PREDNISONE. [Concomitant]
     Active Substance: PREDNISONE
  21. ROSUVASTATIN. [Concomitant]
     Active Substance: ROSUVASTATIN
  22. STRIBILD [Suspect]
     Active Substance: COBICISTAT\ELVITEGRAVIR\EMTRICITABINE\TENOFOVIR DISOPROXIL FUMARATE
     Dosage: UNK
     Route: 065
     Dates: start: 20151120, end: 201803
  23. JULUCA [Concomitant]
     Active Substance: DOLUTEGRAVIR SODIUM\RILPIVIRINE HYDROCHLORIDE
  24. ALBUTEROL SULFATE. [Concomitant]
     Active Substance: ALBUTEROL SULFATE
  25. HYDROCODONE [Concomitant]
     Active Substance: HYDROCODONE
  26. NYSTATIN. [Concomitant]
     Active Substance: NYSTATIN
  27. PANTOPRAZOLE [Concomitant]
     Active Substance: PANTOPRAZOLE
  28. PRAVASTATIN. [Concomitant]
     Active Substance: PRAVASTATIN
  29. TRESIBA [Concomitant]
     Active Substance: INSULIN DEGLUDEC
  30. BIKTARVY [Concomitant]
     Active Substance: BICTEGRAVIR SODIUM\EMTRICITABINE\TENOFOVIR ALAFENAMIDE FUMARATE
  31. FIASP [Concomitant]
     Active Substance: INSULIN ASPART
  32. MIRTAZAPINE. [Concomitant]
     Active Substance: MIRTAZAPINE
  33. OSELTAMIVIR [Concomitant]
     Active Substance: OSELTAMIVIR
  34. VENTOLIN [Concomitant]
     Active Substance: ALBUTEROL SULFATE
  35. STRIBILD [Suspect]
     Active Substance: COBICISTAT\ELVITEGRAVIR\EMTRICITABINE\TENOFOVIR DISOPROXIL FUMARATE
     Indication: HIV INFECTION
     Dosage: UNK
     Route: 065
     Dates: start: 2014
  36. TIVICAY [Concomitant]
     Active Substance: DOLUTEGRAVIR SODIUM
  37. ALAVERT ALLERGY [Concomitant]
     Active Substance: LORATADINE
  38. AMLODIPINE [Concomitant]
     Active Substance: AMLODIPINE BESYLATE
  39. AMOXICILLIN. [Concomitant]
     Active Substance: AMOXICILLIN
  40. CHOLESTYRAMINE. [Concomitant]
     Active Substance: CHOLESTYRAMINE
  41. DICLOFENAC POTASSIUM. [Concomitant]
     Active Substance: DICLOFENAC POTASSIUM
  42. DULOXETINE. [Concomitant]
     Active Substance: DULOXETINE
  43. IMODIUM A?D [Concomitant]
     Active Substance: LOPERAMIDE HYDROCHLORIDE
  44. NAPROXEN. [Concomitant]
     Active Substance: NAPROXEN
  45. PROAIR HFA [Concomitant]
     Active Substance: ALBUTEROL SULFATE
  46. RANITIDINE. [Concomitant]
     Active Substance: RANITIDINE
  47. TIZANIDINE. [Concomitant]
     Active Substance: TIZANIDINE
  48. DESCOVY [Concomitant]
     Active Substance: EMTRICITABINE\TENOFOVIR ALAFENAMIDE FUMARATE
  49. ATENOLOL. [Concomitant]
     Active Substance: ATENOLOL
  50. FAMOTIDINE. [Concomitant]
     Active Substance: FAMOTIDINE
  51. LOSARTAN. [Concomitant]
     Active Substance: LOSARTAN
  52. SODIUM BICARBONATE. [Concomitant]
     Active Substance: SODIUM BICARBONATE
  53. CEFDINIR. [Concomitant]
     Active Substance: CEFDINIR
  54. COLESTIPOL [Concomitant]
     Active Substance: COLESTIPOL
  55. DICYCLOMINE HCL [Concomitant]
     Active Substance: DICYCLOMINE HYDROCHLORIDE
  56. LISINOPRIL. [Concomitant]
     Active Substance: LISINOPRIL
  57. METOCLOPRAMIDE. [Concomitant]
     Active Substance: METOCLOPRAMIDE
  58. METRONIDAZOLE. [Concomitant]
     Active Substance: METRONIDAZOLE
  59. RAMIPRIL. [Concomitant]
     Active Substance: RAMIPRIL
  60. TRULANCE [Concomitant]
     Active Substance: PLECANATIDE
  61. AMITRIPTYLINE [Concomitant]
     Active Substance: AMITRIPTYLINE
  62. OMEPRAZOLE. [Concomitant]
     Active Substance: OMEPRAZOLE
  63. PROMETHAZINE [Concomitant]
     Active Substance: PROMETHAZINE HYDROCHLORIDE
  64. VANCOMYCIN [Concomitant]
     Active Substance: VANCOMYCIN
  65. XIFAXAN [Concomitant]
     Active Substance: RIFAXIMIN

REACTIONS (9)
  - Anxiety [Not Recovered/Not Resolved]
  - Depression [Not Recovered/Not Resolved]
  - Abnormal dreams [Unknown]
  - Multiple fractures [Recovered/Resolved]
  - Emotional distress [Not Recovered/Not Resolved]
  - End stage renal disease [Not Recovered/Not Resolved]
  - Anhedonia [Unknown]
  - Chronic kidney disease [Not Recovered/Not Resolved]
  - Pain [Not Recovered/Not Resolved]

NARRATIVE: CASE EVENT DATE: 2014
